FAERS Safety Report 20982992 (Version 1)
Quarter: 2022Q2

REPORT INFORMATION
  Report Type: Spontaneous
  Country: US (occurrence: US)
  Receive Date: 20220620
  Receipt Date: 20220620
  Transmission Date: 20220720
  Serious: Yes (Death, Other)
  Sender: FDA-Public Use
  Company Number: US-SA-SAC20220617001153

PATIENT
  Age: 67 Year
  Sex: Female

DRUGS (1)
  1. ZANTAC [Suspect]
     Active Substance: RANITIDINE HYDROCHLORIDE
     Indication: Abdominal discomfort
     Dosage: UNK
     Route: 065
     Dates: start: 199501, end: 201901

REACTIONS (2)
  - Gastric cancer stage IV [Fatal]
  - Lip and/or oral cavity cancer stage I [Fatal]

NARRATIVE: CASE EVENT DATE: 20060601
